FAERS Safety Report 14694138 (Version 1)
Quarter: 2018Q1

REPORT INFORMATION
  Report Type: Report from Study
  Country: BR (occurrence: BR)
  Receive Date: 20180329
  Receipt Date: 20180329
  Transmission Date: 20180509
  Serious: Yes (Life-Threatening)
  Sender: FDA-Public Use
  Company Number: BR-JNJFOC-20171227945

PATIENT
  Age: 42 Year
  Sex: Male

DRUGS (6)
  1. STELARA [Suspect]
     Active Substance: USTEKINUMAB
     Indication: PSORIASIS
     Route: 058
  2. NAPRIX [Concomitant]
     Active Substance: RAMIPRIL
     Route: 065
  3. METOPROLOL TARTRATE. [Concomitant]
     Active Substance: METOPROLOL TARTRATE
     Route: 065
  4. SINVASCOR [Concomitant]
     Active Substance: SIMVASTATIN
     Route: 065
  5. STELARA [Suspect]
     Active Substance: USTEKINUMAB
     Indication: PSORIASIS
     Route: 058
     Dates: start: 20140507
  6. SINVASTACOR [Concomitant]
     Active Substance: SIMVASTATIN
     Route: 065

REACTIONS (11)
  - Suicidal ideation [Unknown]
  - Psoriasis [Unknown]
  - Mood altered [Unknown]
  - Panic disorder [Unknown]
  - Irritability [Unknown]
  - Depression [Not Recovered/Not Resolved]
  - Drug ineffective [Unknown]
  - Off label use [Unknown]
  - Treatment noncompliance [Unknown]
  - Arthralgia [Unknown]
  - Visual acuity reduced [Not Recovered/Not Resolved]

NARRATIVE: CASE EVENT DATE: 20140507
